FAERS Safety Report 18348281 (Version 1)
Quarter: 2020Q4

REPORT INFORMATION
  Report Type: Spontaneous
  Country: CA (occurrence: CA)
  Receive Date: 20201006
  Receipt Date: 20201006
  Transmission Date: 20210114
  Serious: Yes (Life-Threatening)
  Sender: FDA-Public Use
  Company Number: CA-ACCORD-204096

PATIENT
  Age: 67 Year
  Sex: Female

DRUGS (5)
  1. DEXAMETHASONE. [Concomitant]
     Active Substance: DEXAMETHASONE
     Route: 065
  2. DIPHENHYDRAMINE. [Concomitant]
     Active Substance: DIPHENHYDRAMINE
  3. RANITIDINE. [Concomitant]
     Active Substance: RANITIDINE
  4. PACLITAXEL/PACLITAXEL LIPOSOME [Suspect]
     Active Substance: PACLITAXEL
     Indication: BREAST CANCER
     Dosage: 6.0 MILLIGRAM/MILLILITER, LIQUID INTRAVENOUS
     Route: 041
  5. REACTINE [Concomitant]

REACTIONS (5)
  - Malaise [Unknown]
  - Resuscitation [Unknown]
  - Flushing [Unknown]
  - Unresponsive to stimuli [Unknown]
  - Blood pressure immeasurable [Unknown]
